FAERS Safety Report 22041708 (Version 5)
Quarter: 2023Q4

REPORT INFORMATION
  Report Type: Report from Study
  Country: MX (occurrence: MX)
  Receive Date: 20230227
  Receipt Date: 20231211
  Transmission Date: 20240110
  Serious: Yes (Other)
  Sender: FDA-Public Use
  Company Number: MX-Merck Healthcare KGaA-9385107

PATIENT
  Age: 25 Year
  Sex: Female

DRUGS (7)
  1. MAVENCLAD [Suspect]
     Active Substance: CLADRIBINE
     Indication: Multiple sclerosis
     Dosage: YEAR ONE WEEK ONE THERAPY
     Route: 048
     Dates: start: 20220411, end: 20220415
  2. MAVENCLAD [Suspect]
     Active Substance: CLADRIBINE
     Dosage: YEAR ONE WEEK FIVE THERAPY.
     Route: 048
     Dates: start: 20220509, end: 20220514
  3. CONCOR AM [Concomitant]
     Indication: Hypertension
  4. AMITRIPTYLINE [Concomitant]
     Active Substance: AMITRIPTYLINE
     Indication: Headache
  5. ERGOCALCIFEROL [Concomitant]
     Active Substance: ERGOCALCIFEROL
     Indication: Headache
  6. FOLIC ACID [Concomitant]
     Active Substance: FOLIC ACID
     Indication: Product used for unknown indication
  7. NALIXONE [Concomitant]
     Indication: Product used for unknown indication

REACTIONS (9)
  - Carbohydrate intolerance [Recovered/Resolved]
  - Premature delivery [Recovered/Resolved]
  - Gastric infection [Recovered/Resolved]
  - Gestational diabetes [Unknown]
  - Cervix dystocia [Recovered/Resolved]
  - Premature rupture of membranes [Recovered/Resolved]
  - Haemorrhage in pregnancy [Unknown]
  - Normal newborn [Recovered/Resolved]
  - Maternal exposure before pregnancy [Recovered/Resolved]

NARRATIVE: CASE EVENT DATE: 20221001
